FAERS Safety Report 9919274 (Version 2)
Quarter: 2014Q1

REPORT INFORMATION
  Report Type: Spontaneous
  Country: JP (occurrence: JP)
  Receive Date: 20140224
  Receipt Date: 20140331
  Transmission Date: 20141002
  Serious: Yes (Hospitalization)
  Sender: FDA-Public Use
  Company Number: JP-JNJFOC-20140211425

PATIENT
  Age: 82 Year
  Sex: Male
  Weight: 74 kg

DRUGS (14)
  1. XARELTO [Suspect]
     Indication: CEREBROVASCULAR ACCIDENT PROPHYLAXIS
     Route: 048
     Dates: start: 20131130, end: 20140205
  2. XARELTO [Suspect]
     Indication: ATRIAL FIBRILLATION
     Route: 048
     Dates: start: 20131130, end: 20140205
  3. PRORENAL [Concomitant]
     Indication: SPINAL COLUMN STENOSIS
     Route: 048
  4. GASTER D [Concomitant]
     Route: 048
  5. EPADEL [Concomitant]
     Indication: DYSLIPIDAEMIA
     Route: 048
  6. NEUROTROPIN [Concomitant]
     Indication: SPINAL COLUMN STENOSIS
     Route: 048
  7. HYPEN [Concomitant]
     Indication: SPINAL COLUMN STENOSIS
     Route: 048
  8. CEREKINON [Concomitant]
     Indication: IRRITABLE BOWEL SYNDROME
     Route: 048
  9. SOLANAX [Concomitant]
     Indication: IRRITABLE BOWEL SYNDROME
     Route: 048
  10. LYRICA [Concomitant]
     Indication: SPINAL COLUMN STENOSIS
     Route: 048
  11. MYSLEE [Concomitant]
     Route: 048
  12. PURSENNID [Concomitant]
     Route: 048
  13. GLUTAMINE [Concomitant]
     Route: 048
  14. MAGMITT [Concomitant]
     Route: 048

REACTIONS (1)
  - Interstitial lung disease [Recovering/Resolving]
